FAERS Safety Report 7346329-9 (Version None)
Quarter: 2011Q1

REPORT INFORMATION
  Report Type: 
  Country: None (occurrence: None)
  Receive Date: 20110311
  Receipt Date: 20110304
  Transmission Date: 20110831
  Serious: Yes (Other)
  Sender: FDA-Public Use
  Company Number: US-US-EMD SERONO, INC.-7011168

PATIENT
  Sex: Female

DRUGS (4)
  1. REBIF [Suspect]
     Indication: MULTIPLE SCLEROSIS
     Route: 058
     Dates: start: 20080206
  2. REBIF [Suspect]
     Route: 058
     Dates: start: 20100101
  3. QUASENSE [Concomitant]
     Indication: CONTRACEPTION
     Route: 048
     Dates: start: 20100706
  4. REBIF [Suspect]
     Route: 058
     Dates: end: 20100101

REACTIONS (2)
  - OPTIC NEURITIS [None]
  - MALAISE [None]
